FAERS Safety Report 19813629 (Version 1)
Quarter: 2021Q3

REPORT INFORMATION
  Report Type: Report from Study
  Country: DE (occurrence: DE)
  Receive Date: 20210909
  Receipt Date: 20210909
  Transmission Date: 20211014
  Serious: Yes (Other)
  Sender: FDA-Public Use
  Company Number: DE-TAKEDA-2021TUS021110

PATIENT
  Age: 75 Year
  Sex: Male

DRUGS (10)
  1. AGALSIDASE ALFA [Suspect]
     Active Substance: AGALSIDASE ALFA
     Dosage: 21 MILLIGRAM, Q2WEEKS
     Route: 042
  2. ENTRESTO [Concomitant]
     Active Substance: SACUBITRIL\VALSARTAN
     Dosage: 97/103MG, BID
     Route: 065
  3. APIXABAN [Concomitant]
     Active Substance: APIXABAN
     Dosage: 5 MILLIGRAM, BID
     Route: 065
  4. AGALSIDASE ALFA [Suspect]
     Active Substance: AGALSIDASE ALFA
     Indication: GAUCHER^S DISEASE
     Dosage: 21 MILLIGRAM, Q2WEEKS
     Route: 042
  5. PREGABALIN. [Concomitant]
     Active Substance: PREGABALIN
     Dosage: 150 MILLIGRAM, BID
     Route: 065
  6. HUMAN NORMAL IMMUNOGLOBULIN [Suspect]
     Active Substance: HUMAN IMMUNOGLOBULIN G
     Indication: PRODUCT USED FOR UNKNOWN INDICATION
     Dosage: UNK
     Route: 065
  7. METAMIZOL [Concomitant]
     Active Substance: METAMIZOLE SODIUM
     Dosage: 1000 MILLIGRAM, PRN
     Route: 050
  8. DIGITOXIN [Concomitant]
     Active Substance: DIGITOXIN
     Dosage: 0.7 MILLIGRAM, QD
     Route: 065
  9. AGALSIDASE ALFA [Suspect]
     Active Substance: AGALSIDASE ALFA
     Dosage: 21 MILLIGRAM,Q2WEEKS
     Route: 042
  10. BISOPROLOL [Concomitant]
     Active Substance: BISOPROLOL
     Dosage: 2.5 MILLIGRAM, BID
     Route: 065

REACTIONS (2)
  - Monoclonal gammopathy [Not Recovered/Not Resolved]
  - Dyspnoea [Not Recovered/Not Resolved]

NARRATIVE: CASE EVENT DATE: 20210317
